FAERS Safety Report 6474804-8 (Version None)
Quarter: 2009Q4

REPORT INFORMATION
  Report Type: 
  Country: None (occurrence: None)
  Receive Date: 20091204
  Receipt Date: 20091201
  Transmission Date: 20100525
  Serious: Yes (Other)
  Sender: FDA-Public Use
  Company Number: CHPA2009US22835

PATIENT
  Sex: Female

DRUGS (1)
  1. TRIAMINIC DAY TIME COLD + COUGH (NCH) [Suspect]
     Dosage: UNK, UNK
     Route: 048

REACTIONS (2)
  - HALLUCINATION [None]
  - MALAISE [None]
